FAERS Safety Report 16997949 (Version 1)
Quarter: 2019Q4

REPORT INFORMATION
  Report Type: Spontaneous
  Country: DK (occurrence: DK)
  Receive Date: 20191106
  Receipt Date: 20191106
  Transmission Date: 20200122
  Serious: Yes (Other)
  Sender: FDA-Public Use
  Company Number: DK-ROCHE-2460014

PATIENT
  Age: 11 Year
  Sex: Female

DRUGS (2)
  1. MABTHERA [Suspect]
     Active Substance: RITUXIMAB
     Indication: GRANULOMATOSIS WITH POLYANGIITIS
     Route: 041
     Dates: start: 2009
  2. PRIVIGEN [Concomitant]
     Active Substance: HUMAN IMMUNOGLOBULIN G
     Indication: GRANULOMATOSIS WITH POLYANGIITIS
     Dosage: STYRKE: 100 MG/ML.
     Route: 065
     Dates: start: 2009

REACTIONS (8)
  - Hypogammaglobulinaemia [Unknown]
  - Decreased immune responsiveness [Not Recovered/Not Resolved]
  - Hormone level abnormal [Unknown]
  - Ureteric obstruction [Unknown]
  - Renal colic [Unknown]
  - Bladder discomfort [Unknown]
  - Dysuria [Unknown]
  - Pollakiuria [Unknown]

NARRATIVE: CASE EVENT DATE: 2009
